FAERS Safety Report 8113440-4 (Version None)
Quarter: 2012Q1

REPORT INFORMATION
  Report Type: 
  Country: None (occurrence: None)
  Receive Date: 20120203
  Receipt Date: 20120201
  Transmission Date: 20120608
  Serious: Yes (Life-Threatening)
  Sender: FDA-Public Use
  Company Number: DE-GENZYME-CLOF-1001729

PATIENT
  Age: 64 Year
  Sex: Male
  Weight: 56 kg

DRUGS (13)
  1. MELPHALAN HYDROCHLORIDE [Suspect]
     Indication: ACUTE MYELOID LEUKAEMIA RECURRENT
     Dosage: 231.0 MG, UNK
     Route: 042
     Dates: start: 20110726, end: 20110726
  2. FORTECORTIN [Concomitant]
     Indication: PROPHYLAXIS
     Dosage: 20 MG, ONCE
     Route: 042
     Dates: start: 20110723, end: 20110723
  3. EVOLTRA [Suspect]
     Indication: ACUTE MYELOID LEUKAEMIA RECURRENT
     Dosage: UNK
     Route: 065
     Dates: start: 20110706, end: 20110710
  4. CYTARABINE [Suspect]
     Indication: ACUTE MYELOID LEUKAEMIA RECURRENT
     Dosage: UNK
     Route: 065
     Dates: start: 20110706, end: 20110710
  5. THYMOGLOBULIN [Concomitant]
     Dosage: 80 MG, ONCE
     Route: 042
     Dates: start: 20110726, end: 20110726
  6. EVOLTRA [Suspect]
     Dosage: 37.1 MG, QD
     Route: 042
     Dates: start: 20110722, end: 20110725
  7. FORTECORTIN [Concomitant]
     Dosage: 4 MG, TID
     Route: 048
     Dates: start: 20110724, end: 20110726
  8. CIPROFLOXACIN [Concomitant]
     Indication: PROPHYLAXIS
     Dosage: 500 MG, QD
     Route: 048
     Dates: start: 20110721, end: 20110727
  9. AMPHOTERICIN B [Concomitant]
     Indication: PROPHYLAXIS
     Dosage: 5 ML, QID
     Route: 048
     Dates: start: 20110714
  10. THYMOGLOBULIN [Concomitant]
     Indication: ACUTE MYELOID LEUKAEMIA RECURRENT
     Dosage: 55 MG, ONCE
     Route: 042
     Dates: start: 20110724, end: 20110724
  11. FLUCONAZOLE [Concomitant]
     Indication: PROPHYLAXIS
     Dosage: 200 MG, BID
     Route: 048
     Dates: start: 20110704
  12. MEPERIDINE HCL [Concomitant]
     Indication: PROPHYLAXIS
     Dosage: 100 MG, CONTINUOUS INFUSION
     Route: 042
     Dates: start: 20110724, end: 20110728
  13. ACYCLOVIR [Concomitant]
     Indication: PROPHYLAXIS
     Dosage: 200 MG, TID
     Route: 048
     Dates: start: 20110704, end: 20110722

REACTIONS (2)
  - MULTI-ORGAN FAILURE [None]
  - SEPSIS [None]
